FAERS Safety Report 11589191 (Version 1)
Quarter: 2015Q4

REPORT INFORMATION
  Report Type: Spontaneous
  Country: US (occurrence: US)
  Receive Date: 20151002
  Receipt Date: 20151002
  Transmission Date: 20160304
  Serious: Yes (Hospitalization, Other)
  Sender: FDA-Public Use
  Company Number: PHHY2015US110535

PATIENT
  Age: 22 Year
  Sex: Male

DRUGS (8)
  1. LIORESAL [Suspect]
     Active Substance: BACLOFEN
     Indication: MUSCLE SPASTICITY
     Dosage: 2070 UG, QD
     Route: 037
  2. LIORESAL [Suspect]
     Active Substance: BACLOFEN
     Dosage: BASAL RATE OF 85MCG/HR AND BOLUSES OF 75MCG AT 01:00, 72MCG AT 04:00 AND 70MCG AT 8PM
     Route: 037
  3. CLONAZEPAM. [Suspect]
     Active Substance: CLONAZEPAM
     Indication: PRODUCT USED FOR UNKNOWN INDICATION
     Route: 065
  4. MIRALAX [Suspect]
     Active Substance: POLYETHYLENE GLYCOL 3350
     Indication: PRODUCT USED FOR UNKNOWN INDICATION
     Route: 065
  5. TRAMADOL. [Suspect]
     Active Substance: TRAMADOL
     Indication: PRODUCT USED FOR UNKNOWN INDICATION
     Route: 065
  6. LIORESAL [Suspect]
     Active Substance: BACLOFEN
     Dosage: UNK (BOLUS OF 200 MCG WAS PERFORMED )
     Route: 037
  7. LIORESAL [Suspect]
     Active Substance: BACLOFEN
     Dosage: 2072 UG, QD
     Route: 037
  8. BACLOFEN. [Suspect]
     Active Substance: BACLOFEN
     Indication: PRODUCT USED FOR UNKNOWN INDICATION
     Route: 048

REACTIONS (10)
  - Joint stiffness [Recovering/Resolving]
  - Somnolence [Recovering/Resolving]
  - Infusion site fibrosis [Unknown]
  - Hypotonia [Recovering/Resolving]
  - Hypertonia [Recovering/Resolving]
  - Pain [Not Recovered/Not Resolved]
  - Back pain [Not Recovered/Not Resolved]
  - Muscle spasticity [Unknown]
  - Decubitus ulcer [Recovering/Resolving]
  - Muscle spasms [Recovering/Resolving]

NARRATIVE: CASE EVENT DATE: 201504
